FAERS Safety Report 9106791 (Version 1)
Quarter: 2013Q1

REPORT INFORMATION
  Report Type: Report from Study
  Country: US (occurrence: US)
  Receive Date: 20130221
  Receipt Date: 20130221
  Transmission Date: 20140127
  Serious: Yes (Other)
  Sender: FDA-Public Use
  Company Number: US-JNJFOC-20130208511

PATIENT
  Age: 57 None
  Sex: Female
  Weight: 104.33 kg

DRUGS (8)
  1. STELARA [Suspect]
     Indication: PSORIASIS
     Route: 058
     Dates: start: 201211
  2. TACLONEX [Suspect]
     Indication: SCAB
  3. LITHIUM [Concomitant]
     Indication: BIPOLAR DISORDER
     Route: 048
  4. LANTUS [Concomitant]
     Indication: DIABETES MELLITUS
     Route: 058
  5. METFORMIN [Concomitant]
     Indication: DIABETES MELLITUS
  6. GLYBURIDE [Concomitant]
     Indication: DIABETES MELLITUS
     Route: 048
  7. RANITIDINE [Concomitant]
     Indication: GASTRIC DISORDER
     Route: 048
  8. DIPHENHYDRAMINE [Concomitant]
     Indication: PRURITUS
     Route: 048

REACTIONS (6)
  - Neuropathy peripheral [Not Recovered/Not Resolved]
  - Blood glucose increased [Not Recovered/Not Resolved]
  - Arthritis [Not Recovered/Not Resolved]
  - Psoriasis [Not Recovered/Not Resolved]
  - Scab [Not Recovered/Not Resolved]
  - Bursitis [Not Recovered/Not Resolved]
